FAERS Safety Report 10415354 (Version 1)
Quarter: 2014Q3

REPORT INFORMATION
  Report Type: Spontaneous
  Country: US (occurrence: None)
  Receive Date: 20140826
  Receipt Date: 20140826
  Transmission Date: 20150326
  Serious: Yes (Hospitalization)
  Sender: FDA-Public Use
  Company Number: US-ZYDUS-004136

PATIENT
  Age: 78 Year
  Sex: Male

DRUGS (2)
  1. DONEPEZIL (DONEPEZIL) [Suspect]
     Active Substance: DONEPEZIL
  2. RIVASTIGMINE (RIVASTIGMINE) PATCH [Suspect]
     Active Substance: RIVASTIGMINE

REACTIONS (7)
  - Lethargy [None]
  - Bradycardia [None]
  - Confusional state [None]
  - Miosis [None]
  - Encephalopathy [None]
  - Blood cholinesterase decreased [None]
  - Cholinesterase inhibition [None]
